FAERS Safety Report 11482867 (Version 1)
Quarter: 2015Q3

REPORT INFORMATION
  Report Type: Spontaneous
  Country: US (occurrence: None)
  Receive Date: 20150908
  Receipt Date: 20150908
  Transmission Date: 20151125
  Serious: Yes (Disabling)
  Sender: FDA-Public Use
  Company Number: None

PATIENT
  Age: 49 Year
  Sex: Female
  Weight: 250 kg

DRUGS (3)
  1. CPAP [Concomitant]
     Active Substance: DEVICE
  2. XARELTO [Suspect]
     Active Substance: RIVAROXABAN
     Indication: ATRIAL FIBRILLATION
     Dosage: 1  ONCE DAILY TAKEN BY MOUTH?DATES OF USE: MONTHLY
     Route: 048
  3. LOPRESSOR [Concomitant]
     Active Substance: METOPROLOL TARTRATE

REACTIONS (3)
  - Skin discolouration [None]
  - Alopecia [None]
  - Swelling face [None]

NARRATIVE: CASE EVENT DATE: 20130207
